FAERS Safety Report 8619836-6 (Version None)
Quarter: 2012Q3

REPORT INFORMATION
  Report Type: 
  Country: None (occurrence: None)
  Receive Date: 20120824
  Receipt Date: 20120816
  Transmission Date: 20120928
  Serious: Yes (Other)
  Sender: FDA-Public Use
  Company Number: JP-PFIZER INC-2012203418

PATIENT
  Age: 22 Year
  Sex: Male
  Weight: 68.6 kg

DRUGS (3)
  1. FOSPHENYTOIN SODIUM [Suspect]
     Indication: CONVULSION
     Dosage: 1340 MG, 1X/DAY
     Route: 042
     Dates: start: 20120723, end: 20120723
  2. IBUPROFEN [Concomitant]
     Dosage: 7 DF, 1X/DAY
     Dates: start: 20120720
  3. ETIZOLAM [Concomitant]
     Dosage: 80 G, 1X/DAY
     Dates: start: 20120720

REACTIONS (2)
  - AGGRESSION [None]
  - VERTIGO [None]
